FAERS Safety Report 13031526 (Version 1)
Quarter: 2016Q4

REPORT INFORMATION
  Report Type: Spontaneous
  Country: US (occurrence: US)
  Receive Date: 20161215
  Receipt Date: 20161215
  Transmission Date: 20170207
  Serious: No
  Sender: FDA-Public Use
  Company Number: US-BAUSCH-BL-2016-017829

PATIENT
  Sex: Female

DRUGS (1)
  1. SYPRINE [Suspect]
     Active Substance: TRIENTINE HYDROCHLORIDE
     Indication: PRODUCT USED FOR UNKNOWN INDICATION
     Dosage: 2 CAPSULE IN MORNING AND 3CAPSULE IN EVENING.
     Route: 048
     Dates: start: 20140218

REACTIONS (3)
  - Drug dose omission [Unknown]
  - Nasopharyngitis [Recovered/Resolved]
  - Malaise [Recovered/Resolved]
